FAERS Safety Report 25553970 (Version 1)
Quarter: 2025Q3

REPORT INFORMATION
  Report Type: Spontaneous
  Country: CA (occurrence: CA)
  Receive Date: 20250715
  Receipt Date: 20250715
  Transmission Date: 20251021
  Serious: Yes (Other)
  Sender: ADVANZ PHARMA
  Company Number: CA-ADVANZ PHARMA-202507005380

PATIENT

DRUGS (1)
  1. PILOCARPINE [Suspect]
     Active Substance: PILOCARPINE
     Indication: Product used for unknown indication
     Route: 047

REACTIONS (10)
  - Retinal tear [Recovered/Resolved]
  - Retinal detachment [Recovered/Resolved]
  - Myopia [Recovered/Resolved]
  - Visual impairment [Recovered/Resolved]
  - Dizziness [Recovered/Resolved]
  - Eye pain [Recovered/Resolved]
  - Headache [Recovered/Resolved]
  - Nausea [Recovered/Resolved]
  - Vision blurred [Recovered/Resolved]
  - Product quality issue [Recovered/Resolved]
